FAERS Safety Report 9392563 (Version 1)
Quarter: 2013Q3

REPORT INFORMATION
  Report Type: Spontaneous
  Country: US (occurrence: None)
  Receive Date: 20130708
  Receipt Date: 20130708
  Transmission Date: 20140515
  Serious: Yes (Life-Threatening, Hospitalization, Disabling)
  Sender: FDA-Public Use
  Company Number: None

PATIENT
  Age: 64 Year
  Sex: Female
  Weight: 97.07 kg

DRUGS (1)
  1. HUMERA [Suspect]
     Indication: RHEUMATOID ARTHRITIS
     Dosage: 40 MG 1X EVERY 2WEEKS
     Dates: start: 20120301, end: 20130416

REACTIONS (1)
  - Malignant melanoma [None]
